FAERS Safety Report 4453839-0 (Version None)
Quarter: 2004Q3

REPORT INFORMATION
  Report Type: 
  Country: None (occurrence: None)
  Receive Date: 20040920
  Receipt Date: 20040910
  Transmission Date: 20050211
  Serious: Yes (Other)
  Sender: FDA-Public Use
  Company Number: FI-ROCHE-380468

PATIENT
  Age: 50 Year
  Sex: Female

DRUGS (3)
  1. PEGASYS [Suspect]
     Indication: HEPATITIS C
     Route: 065
     Dates: start: 20040315, end: 20040615
  2. PEGASYS [Suspect]
     Route: 065
     Dates: start: 20040615, end: 20040915
  3. COPEGUS [Concomitant]
     Indication: HEPATITIS C
     Dates: start: 20040315, end: 20040915

REACTIONS (2)
  - BLOOD THYROID STIMULATING HORMONE INCREASED [None]
  - ORAL MUCOSAL DISORDER [None]
